FAERS Safety Report 9402846 (Version 1)
Quarter: 2013Q3

REPORT INFORMATION
  Report Type: Spontaneous
  Country: US (occurrence: None)
  Receive Date: 20130712
  Receipt Date: 20130712
  Transmission Date: 20140515
  Serious: Yes (Other)
  Sender: FDA-Public Use
  Company Number: 2013P1011301

PATIENT
  Age: 33 Year
  Sex: Male

DRUGS (2)
  1. MYORISAN [Suspect]
     Indication: ACNE CYSTIC
     Route: 048
     Dates: start: 20121203
  2. MYORISAN [Suspect]
     Indication: ACNE
     Route: 048
     Dates: start: 20121203

REACTIONS (2)
  - Haematochezia [None]
  - Colitis ulcerative [None]
